FAERS Safety Report 19255763 (Version 2)
Quarter: 2021Q2

REPORT INFORMATION
  Report Type: Spontaneous
  Country: US (occurrence: US)
  Receive Date: 20210514
  Receipt Date: 20210528
  Transmission Date: 20210717
  Serious: No
  Sender: FDA-Public Use
  Company Number: US-LUPIN PHARMACEUTICALS INC.-2021-06722

PATIENT
  Sex: Female

DRUGS (1)
  1. RIFAMPIN CAPSULES USP, 300 MG [Suspect]
     Active Substance: RIFAMPIN
     Indication: MYCOBACTERIUM AVIUM COMPLEX INFECTION
     Dosage: 300 MILLIGRAM, BID (1 MONTH AGO)
     Route: 048

REACTIONS (2)
  - Faeces discoloured [Unknown]
  - Chromaturia [Unknown]

NARRATIVE: CASE EVENT DATE: 20210430
